FAERS Safety Report 4740360-5 (Version None)
Quarter: 2005Q3

REPORT INFORMATION
  Report Type: 
  Country: None (occurrence: None)
  Receive Date: 20050801
  Receipt Date: 20050503
  Transmission Date: 20060218
  Serious: Yes (Other)
  Sender: FDA-Public Use
  Company Number: HQWYE592909MAY05

PATIENT
  Sex: Male

DRUGS (1)
  1. MINOCIN [Suspect]
     Indication: ACNE

REACTIONS (1)
  - LUPUS-LIKE SYNDROME [None]
